FAERS Safety Report 17094150 (Version 1)
Quarter: 2019Q4

REPORT INFORMATION
  Report Type: Spontaneous
  Country: FR (occurrence: FR)
  Receive Date: 20191129
  Receipt Date: 20191129
  Transmission Date: 20200122
  Serious: Yes (Death, Life-Threatening)
  Sender: FDA-Public Use
  Company Number: NVSC2019FR047259

PATIENT
  Age: 54 Year
  Sex: Female
  Weight: 46 kg

DRUGS (5)
  1. DESLORATADINE. [Suspect]
     Active Substance: DESLORATADINE
     Indication: TOXICITY TO VARIOUS AGENTS
     Dosage: 65 MG, TOTAL (13 COMPRIMES DE 5MG EN UNE SEULE PRISE)
     Route: 048
     Dates: start: 20190809
  2. ZOLPIDEM [Suspect]
     Active Substance: ZOLPIDEM TARTRATE
     Indication: TOXICITY TO VARIOUS AGENTS
     Dosage: 140 MG, TOTAL (14 COMPRIMES DE 10 MG EN UNE SEULE PRISE)
     Route: 048
     Dates: start: 20190809
  3. GABAPENTIN. [Suspect]
     Active Substance: GABAPENTIN
     Indication: TOXICITY TO VARIOUS AGENTS
     Dosage: 6000 MG (20 GELULES DE 300MG EN UNE SEULE PRISE)
     Route: 048
     Dates: start: 20190809
  4. DIFFU-K [Suspect]
     Active Substance: POTASSIUM CHLORIDE
     Indication: TOXICITY TO VARIOUS AGENTS
     Dosage: 13 DF (13 GELULES DE 600MG EN UNE SEULE PRISE)
     Route: 048
     Dates: start: 20190809
  5. MIANSERIN [Suspect]
     Active Substance: MIANSERIN
     Indication: TOXICITY TO VARIOUS AGENTS
     Dosage: 180 MG (3 COMPRIMES DE 60 MG EN UNE SEULE PRISE)
     Route: 048
     Dates: start: 20190809

REACTIONS (6)
  - Disseminated intravascular coagulation [Fatal]
  - Toxicity to various agents [Fatal]
  - Cardio-respiratory arrest [Fatal]
  - Respiratory disorder [Fatal]
  - Arrhythmia [Fatal]
  - Hyperkalaemia [Fatal]

NARRATIVE: CASE EVENT DATE: 20190809
